FAERS Safety Report 5994178-6 (Version None)
Quarter: 2008Q4

REPORT INFORMATION
  Report Type: 
  Country: None (occurrence: None)
  Receive Date: 20081212
  Receipt Date: 20080903
  Transmission Date: 20090506
  Serious: No
  Sender: FDA-Public Use
  Company Number: US-ABBOTT-08P-163-0474050-00

PATIENT
  Sex: Male
  Weight: 113.5 kg

DRUGS (18)
  1. HUMIRA [Suspect]
     Indication: ANKYLOSING SPONDYLITIS
     Route: 058
     Dates: start: 20070817
  2. HUMIRA [Suspect]
     Indication: ANKYLOSING SPONDYLITIS
     Route: 058
  3. PREDNISONE TAB [Suspect]
     Indication: CROHN'S DISEASE
     Dosage: VARIES, TAPERING DOSE
     Route: 048
     Dates: start: 20020101
  4. PREDNISONE TAB [Suspect]
     Indication: ANKYLOSING SPONDYLITIS
  5. ALENDRONATE SODIUM [Concomitant]
     Indication: MINERAL SUPPLEMENTATION
     Route: 048
     Dates: start: 20070101
  6. CALCIUM [Concomitant]
     Indication: MINERAL SUPPLEMENTATION
     Route: 048
     Dates: start: 20070101
  7. ERGOCALCIFEROL [Concomitant]
     Indication: VITAMIN SUPPLEMENTATION
     Route: 048
     Dates: start: 20070101
  8. FOLIC ACID [Concomitant]
     Indication: VITAMIN SUPPLEMENTATION
     Route: 048
     Dates: start: 20070101
  9. VIGRAN [Concomitant]
     Indication: VITAMIN SUPPLEMENTATION
     Route: 048
     Dates: start: 20070101
  10. LACTOBACILLUS ACIDOPHILUS [Concomitant]
     Indication: GASTROOESOPHAGEAL REFLUX DISEASE
     Route: 048
     Dates: start: 20030101
  11. MESALAMINE [Concomitant]
     Indication: CROHN'S DISEASE
     Dosage: 3200-4800MG DAILY, 400MG 8-12 PER DAY
     Route: 048
     Dates: start: 19980101
  12. VALPROATE SODIUM [Concomitant]
     Indication: BIPOLAR DISORDER
     Route: 048
     Dates: start: 19960101
  13. HYDROCHLOROTHIAZIDE [Concomitant]
     Indication: HYPERTENSION
     Route: 048
     Dates: start: 19940101
  14. TRILIPTAL [Concomitant]
     Indication: BIPOLAR DISORDER
     Route: 048
     Dates: start: 20000101
  15. METFORMIN HCL [Concomitant]
     Indication: DIABETES MELLITUS
     Route: 048
     Dates: start: 20080601
  16. ACETYLSALICYLIC ACID SRT [Concomitant]
     Indication: PROPHYLAXIS
     Route: 048
     Dates: start: 20030101
  17. CONTROLLED RELEASE MORPHINE SULFATE [Concomitant]
     Indication: PAIN
     Dosage: 24-30MG DAILY, AS NEEDED
     Route: 048
     Dates: start: 20080701
  18. METHOTREXATE [Concomitant]
     Indication: RHEUMATOID ARTHRITIS
     Dosage: 20MG WEEKLY, 2.5MG PILLS, 8 PER WEEK
     Route: 048

REACTIONS (10)
  - BLOOD GLUCOSE INCREASED [None]
  - BLOOD TRIGLYCERIDES INCREASED [None]
  - CHEST PAIN [None]
  - DRUG EFFECT DECREASED [None]
  - HYPOAESTHESIA [None]
  - HYPOKINESIA [None]
  - JOINT STIFFNESS [None]
  - LACRIMATION INCREASED [None]
  - PAIN IN EXTREMITY [None]
  - VISION BLURRED [None]
